FAERS Safety Report 7574079-2 (Version None)
Quarter: 2011Q2

REPORT INFORMATION
  Report Type: 
  Country: None (occurrence: None)
  Receive Date: 20110627
  Receipt Date: 20110520
  Transmission Date: 20111010
  Serious: No
  Sender: FDA-Public Use
  Company Number: US-BAYER-2011-045160

PATIENT
  Age: 39 Year
  Sex: Male
  Weight: 88 kg

DRUGS (1)
  1. ALEVE (CAPLET) [Suspect]
     Indication: ARTHRALGIA
     Dosage: 220 MG, ONCE
     Route: 048
     Dates: start: 20110520

REACTIONS (3)
  - RASH GENERALISED [None]
  - UNEVALUABLE EVENT [None]
  - OROPHARYNGEAL DISCOMFORT [None]
